FAERS Safety Report 10112213 (Version 2)
Quarter: 2014Q2

REPORT INFORMATION
  Report Type: Report from Study
  Country: MX (occurrence: MX)
  Receive Date: 20140425
  Receipt Date: 20140425
  Transmission Date: 20141212
  Serious: Yes (Hospitalization, Other)
  Sender: FDA-Public Use
  Company Number: PHHY2012MX094037

PATIENT
  Age: 72 Year
  Sex: Female

DRUGS (9)
  1. DIOVAN [Suspect]
     Indication: HYPERTENSION
     Dosage: 320 MG, UNK
     Route: 048
  2. DIOVAN [Suspect]
     Dosage: 160 MG, DAILY
     Route: 048
     Dates: start: 201312, end: 201401
  3. DIOVAN [Suspect]
     Dosage: 160 MG, DAILY
     Route: 048
     Dates: start: 20140421
  4. SELOPRESIN [Concomitant]
     Indication: HYPERTENSION
     Dosage: 0.5 DF (IN THE MORNING AND IN THE EVENING), BID
  5. LEVOTHYROXINE [Concomitant]
     Indication: HYPOTHYROIDISM
     Dosage: 100 MG, PER DAY
  6. ACETYLSALICYLIC ACID [Concomitant]
     Indication: CARDIOVASCULAR DISORDER
     Dosage: 0.5 DF, DAILY
  7. FOLIC ACID [Concomitant]
     Dosage: 1 UKN, DAILY
     Dates: start: 2012
  8. EUTIROX [Concomitant]
     Indication: THYROID DISORDER
     Dosage: 1 UKN, DAILY
     Dates: start: 2000
  9. HYDROCHLOROTHIAZIDE [Concomitant]
     Indication: FLUID RETENTION
     Dosage: 1 UKN, DAILY
     Dates: start: 2010

REACTIONS (4)
  - Cholelithiasis [Recovered/Resolved]
  - Blood pressure increased [Recovered/Resolved]
  - Blood pressure inadequately controlled [Unknown]
  - Headache [Unknown]
